FAERS Safety Report 6874286-8 (Version None)
Quarter: 2010Q3

REPORT INFORMATION
  Report Type: 
  Country: None (occurrence: None)
  Receive Date: 20100723
  Receipt Date: 20090506
  Transmission Date: 20110219
  Serious: No
  Sender: FDA-Public Use
  Company Number: US-PFIZER INC-2009212702

PATIENT
  Sex: Female

DRUGS (1)
  1. CHANTIX [Suspect]
     Indication: SMOKING CESSATION THERAPY
     Dosage: 1 MG, 2X/DAY
     Dates: start: 20090401, end: 20090401

REACTIONS (5)
  - ABDOMINAL PAIN UPPER [None]
  - ABNORMAL DREAMS [None]
  - DYSGEUSIA [None]
  - FATIGUE [None]
  - HEADACHE [None]
